FAERS Safety Report 11528786 (Version 1)
Quarter: 2015Q3

REPORT INFORMATION
  Report Type: Spontaneous
  Country: US (occurrence: None)
  Receive Date: 20150918
  Receipt Date: 20150918
  Transmission Date: 20151125
  Serious: No
  Sender: FDA-Public Use
  Company Number: None

PATIENT
  Age: 75 Year
  Sex: Female
  Weight: 63.5 kg

DRUGS (22)
  1. GABAPENTIN. [Concomitant]
     Active Substance: GABAPENTIN
  2. CALCIUM CITRATE [Concomitant]
     Active Substance: CALCIUM CITRATE
  3. VITAMIN D [Concomitant]
     Active Substance: CHOLECALCIFEROL
  4. B5 [Concomitant]
  5. C [Concomitant]
  6. B6 [Concomitant]
     Active Substance: PYRIDOXINE HYDROCHLORIDE
  7. LOSARTAN. [Concomitant]
     Active Substance: LOSARTAN
  8. ACETYL CARNITINE [Concomitant]
  9. MULTIVITAMINS [Concomitant]
     Active Substance: VITAMINS
  10. E [Concomitant]
  11. CRESTOR [Concomitant]
     Active Substance: ROSUVASTATIN CALCIUM
  12. DICLOFENAC [Concomitant]
     Active Substance: DICLOFENAC
  13. B1 [Concomitant]
  14. B2 [Concomitant]
  15. COQ10 [Concomitant]
     Active Substance: UBIDECARENONE
  16. VOLTAREN [Concomitant]
     Active Substance: DICLOFENAC SODIUM
  17. FISH OIL [Concomitant]
     Active Substance: FISH OIL
  18. PLANT STEROLS [Concomitant]
  19. OMEPRAZOLE 40 MG ZYDUS [Suspect]
     Active Substance: OMEPRAZOLE
     Indication: DYSPEPSIA
     Route: 048
     Dates: start: 20150914, end: 20150916
  20. GLUCOSAMINE SULFATE [Concomitant]
     Active Substance: GLUCOSAMINE SULFATE
  21. MITOCHONDRIAL COCKTAIL [Concomitant]
  22. R-LIPOIC ACID [Concomitant]

REACTIONS (3)
  - Dyspepsia [None]
  - Drug ineffective [None]
  - Product substitution issue [None]

NARRATIVE: CASE EVENT DATE: 20150917
